APPROVED DRUG PRODUCT: NEOMYCIN AND POLYMYXIN B SULFATES AND HYDROCORTISONE
Active Ingredient: HYDROCORTISONE; NEOMYCIN SULFATE; POLYMYXIN B SULFATE
Strength: 1%;EQ 3.5MG BASE/ML;10,000 UNITS/ML
Dosage Form/Route: SOLUTION/DROPS;OTIC
Application: A062423 | Product #001 | TE Code: AT
Applicant: SANDOZ INC
Approved: Aug 25, 1983 | RLD: No | RS: No | Type: RX